FAERS Safety Report 8988651 (Version 1)
Quarter: 2012Q4

REPORT INFORMATION
  Report Type: Report from Study
  Country: JP (occurrence: JP)
  Receive Date: 20121227
  Receipt Date: 20121227
  Transmission Date: 20130627
  Serious: No
  Sender: FDA-Public Use
  Company Number: PHHY2012JP117429

PATIENT
  Age: 51 Year
  Sex: Male

DRUGS (1)
  1. AFINITOR [Suspect]
     Indication: PANCREATIC NEUROENDOCRINE TUMOUR
     Dosage: 10 mg, UNK
     Dates: start: 20120208

REACTIONS (3)
  - Interstitial lung disease [Recovering/Resolving]
  - Blood glucose increased [Not Recovered/Not Resolved]
  - Stomatitis [Recovered/Resolved]
